FAERS Safety Report 14371531 (Version 1)
Quarter: 2018Q1

REPORT INFORMATION
  Report Type: Spontaneous
  Country: GB (occurrence: GB)
  Receive Date: 20180110
  Receipt Date: 20180110
  Transmission Date: 20180509
  Serious: Yes (Hospitalization)
  Sender: FDA-Public Use
  Company Number: GB-ASTRAZENECA-2017SF14151

PATIENT
  Age: 30965 Day
  Sex: Female

DRUGS (17)
  1. FERROUS FUMARATE [Concomitant]
     Active Substance: FERROUS FUMARATE
     Dosage: 210 MG THREEE TIMES A DAY AT 08:00, 13:00 AND 17:00
     Route: 048
  2. RAMIPRIL. [Concomitant]
     Active Substance: RAMIPRIL
     Dosage: 10 MG EVERY MORNING AT 08:00
     Route: 048
  3. BISOPROLOL FUMARATE. [Concomitant]
     Active Substance: BISOPROLOL FUMARATE
     Dosage: 5 MG TCIE A DAY 08:00 AND 17:00
     Route: 048
  4. LINAGLIPTIN [Concomitant]
     Active Substance: LINAGLIPTIN
     Dosage: 5  MG EVERY MORNING AT 08:00
     Route: 048
  5. AMLODIPINE [Concomitant]
     Active Substance: AMLODIPINE BESYLATE
  6. CLOPIDOGREL [Concomitant]
     Active Substance: CLOPIDOGREL BISULFATE
  7. BUPRENORPHINE. [Concomitant]
     Active Substance: BUPRENORPHINE
  8. SULPHONYLUREA [Concomitant]
  9. SIMVASTATIN. [Concomitant]
     Active Substance: SIMVASTATIN
  10. DABIGATRAN [Concomitant]
     Active Substance: DABIGATRAN
     Dosage: 110 MG TWICE A DAY 08:00 AND 17:00
     Route: 048
  11. DICLOFENAC [Concomitant]
     Active Substance: DICLOFENAC
     Dosage: 1 APPLICATION EVERY 4 TO 6 HOURS AS REQUIRED
     Route: 061
  12. BISOPROLOL FUMARATE. [Concomitant]
     Active Substance: BISOPROLOL FUMARATE
     Route: 048
  13. FORXIGA [Suspect]
     Active Substance: DAPAGLIFLOZIN
     Indication: BLOOD GLUCOSE INCREASED
     Route: 048
     Dates: start: 20171017, end: 20171031
  14. METFORMIN [Concomitant]
     Active Substance: METFORMIN HYDROCHLORIDE
     Dosage: 100 MG TWICE A DAY AT 08:00 AND 17:00
     Route: 048
  15. EPLERENONE. [Concomitant]
     Active Substance: EPLERENONE
  16. ALENDRONIC ACID [Concomitant]
     Active Substance: ALENDRONIC ACID
     Route: 048
  17. LANSOPRAZOLE. [Concomitant]
     Active Substance: LANSOPRAZOLE
     Dosage: 30 MG EVERY MORNING AT 08:00
     Route: 048

REACTIONS (4)
  - Urinary tract infection [Unknown]
  - Atrial fibrillation [Unknown]
  - Hallucination, visual [Unknown]
  - Hallucination, auditory [Unknown]

NARRATIVE: CASE EVENT DATE: 20171027
